FAERS Safety Report 8105843-9 (Version None)
Quarter: 2012Q1

REPORT INFORMATION
  Report Type: 
  Country: None (occurrence: None)
  Receive Date: 20120202
  Receipt Date: 20120124
  Transmission Date: 20120608
  Serious: Yes (Disabling, Other)
  Sender: FDA-Public Use
  Company Number: IT-BIOGENIDEC-2011BI034822

PATIENT
  Age: 30 Year
  Sex: Female
  Weight: 80 kg

DRUGS (2)
  1. TYSABRI [Suspect]
     Indication: RELAPSING-REMITTING MULTIPLE SCLEROSIS
     Route: 042
     Dates: start: 20070622, end: 20110726
  2. CORTICOSTEROIDS [Concomitant]
     Dates: end: 20110829

REACTIONS (5)
  - RESPIRATORY DISTRESS [None]
  - ESCHERICHIA TEST POSITIVE [None]
  - IMMUNE RECONSTITUTION SYNDROME [None]
  - THROMBOPHLEBITIS [None]
  - PROGRESSIVE MULTIFOCAL LEUKOENCEPHALOPATHY [None]
